FAERS Safety Report 23085603 (Version 4)
Quarter: 2023Q4

REPORT INFORMATION
  Report Type: Spontaneous
  Country: US (occurrence: US)
  Receive Date: 20231019
  Receipt Date: 20231115
  Transmission Date: 20240110
  Serious: Yes (Other)
  Sender: FDA-Public Use
  Company Number: US-PFIZER INC-PV202300170650

PATIENT
  Age: 55 Year
  Sex: Female

DRUGS (1)
  1. IBRANCE [Suspect]
     Active Substance: PALBOCICLIB
     Dosage: UNK

REACTIONS (9)
  - Neutropenia [Unknown]
  - Feeling abnormal [Unknown]
  - Fatigue [Unknown]
  - Chills [Unknown]
  - Pyrexia [Recovered/Resolved]
  - Nasal dryness [Unknown]
  - Epistaxis [Unknown]
  - Bone pain [Unknown]
  - Pain [Unknown]
